FAERS Safety Report 9790838 (Version 1)
Quarter: 2013Q4

REPORT INFORMATION
  Report Type: Report from Study
  Country: JP (occurrence: JP)
  Receive Date: 20131231
  Receipt Date: 20131231
  Transmission Date: 20140711
  Serious: Yes (Death)
  Sender: FDA-Public Use
  Company Number: JP-009507513-1312JPN012669

PATIENT
  Age: 60 Year
  Sex: Female
  Weight: 47 kg

DRUGS (16)
  1. REMERON [Suspect]
     Indication: DEPRESSION
     Dosage: 15 MG, QD
     Route: 048
     Dates: start: 20120404, end: 20120420
  2. REMERON [Suspect]
     Dosage: 15 MG, QD
     Route: 048
     Dates: start: 20120421, end: 20120618
  3. REMERON [Suspect]
     Dosage: 15 MG, QD
     Route: 048
     Dates: start: 20120519, end: 20120709
  4. JZOLOFT [Concomitant]
     Indication: DEPRESSION
     Dosage: DAILY DOSE UNKNOWN, 25-75MG, DOESE, FREQUENCY UNKNOWN
     Route: 048
     Dates: start: 20110910, end: 20120403
  5. LITHIUM CARBONATE [Concomitant]
     Indication: DEPRESSION
     Dosage: 300 MG, QD
     Route: 048
     Dates: start: 20120404, end: 20130115
  6. LITHIUM CARBONATE [Concomitant]
     Dosage: 400 MG, QD
     Route: 048
     Dates: start: 20120519, end: 20130115
  7. LITHIUM CARBONATE [Concomitant]
     Dosage: 400 MG, QD
     Route: 048
     Dates: start: 20110917
  8. SEROQUEL [Concomitant]
     Indication: DEPRESSION
     Dosage: 50 MG, QD
     Route: 048
     Dates: start: 20120404, end: 20130115
  9. SEROQUEL [Concomitant]
     Dosage: 100 MG, QD
     Route: 048
     Dates: start: 20120519, end: 20130115
  10. SEROQUEL [Concomitant]
     Dosage: 50 MG, QD
     Route: 048
     Dates: start: 20120519, end: 20130115
  11. SEROQUEL [Concomitant]
     Dosage: 50 MG, QD
     Route: 048
     Dates: start: 20111206
  12. RIVOTRIL [Concomitant]
     Indication: DEPRESSION
     Dosage: 1 MG, QD
     Route: 048
     Dates: start: 20111206
  13. RIVOTRIL [Concomitant]
     Dosage: 0.5 MG, QD
     Route: 048
     Dates: start: 20120404, end: 20130115
  14. RIVOTRIL [Concomitant]
     Dosage: 1.5 MG, QD
     Route: 048
     Dates: start: 20120519, end: 20130115
  15. NORVASC [Concomitant]
     Dosage: 2.5 MG, QD
     Route: 048
     Dates: start: 20120404, end: 20130115
  16. [THERAPY UNSPECIFIED] [Concomitant]
     Indication: LUNG NEOPLASM MALIGNANT
     Dosage: UNK
     Dates: start: 201208

REACTIONS (1)
  - Death [Fatal]
